FAERS Safety Report 7775725-0 (Version None)
Quarter: 2011Q3

REPORT INFORMATION
  Report Type: 
  Country: None (occurrence: None)
  Receive Date: 20110923
  Receipt Date: 20110915
  Transmission Date: 20111222
  Serious: Yes (Hospitalization)
  Sender: FDA-Public Use
  Company Number: JP-GLAXOSMITHKLINE-B0748755A

PATIENT
  Sex: Female

DRUGS (2)
  1. CEFTAZIDIME SODIUM [Suspect]
     Indication: PYREXIA
     Dosage: 2G PER DAY
     Route: 042
     Dates: start: 20110614, end: 20110616
  2. CEFOTIAM HYDROCHLORIDE [Concomitant]
     Indication: PYREXIA
     Dosage: 1G PER DAY
     Route: 042
     Dates: start: 20110611, end: 20110613

REACTIONS (1)
  - RENAL FAILURE ACUTE [None]
